FAERS Safety Report 7215178-4 (Version None)
Quarter: 2011Q1

REPORT INFORMATION
  Report Type: 
  Country: None (occurrence: None)
  Receive Date: 20110107
  Receipt Date: 20101006
  Transmission Date: 20110831
  Serious: No
  Sender: FDA-Public Use
  Company Number: A0885226A

PATIENT
  Age: 76 Year
  Sex: Female

DRUGS (4)
  1. HECTOROL [Concomitant]
  2. HYDROCHLOROTHIAZIDE [Concomitant]
  3. EXFORGE [Concomitant]
  4. LOVAZA [Suspect]
     Dosage: 2CAP TWICE PER DAY
     Route: 048
     Dates: start: 20101004

REACTIONS (1)
  - DRUG ADMINISTRATION ERROR [None]
